FAERS Safety Report 5296312-2 (Version None)
Quarter: 2007Q1

REPORT INFORMATION
  Report Type: 
  Country: None (occurrence: None)
  Receive Date: 20070201
  Receipt Date: 20061017
  Transmission Date: 20070707
  Serious: No
  Sender: FDA-Public Use
  Company Number: 2006PV023419

PATIENT
  Age: 65 Year
  Sex: Male
  Weight: 87.9978 kg

DRUGS (7)
  1. BYETTA [Suspect]
     Indication: DIABETES MELLITUS NON-INSULIN-DEPENDENT
     Dosage: 5 MCG; BID; SC
     Route: 058
     Dates: start: 20061001
  2. TOPROL-XL [Concomitant]
  3. DIOVAN HCT [Concomitant]
  4. HCT ^ISIS^ [Concomitant]
  5. ACTOS [Concomitant]
  6. STARLIX [Concomitant]
  7. GLUCOPHAGE [Concomitant]

REACTIONS (2)
  - BLOOD PRESSURE SYSTOLIC INCREASED [None]
  - STRESS [None]
